FAERS Safety Report 4357194-6 (Version None)
Quarter: 2004Q2

REPORT INFORMATION
  Report Type: 
  Country: None (occurrence: None)
  Receive Date: 20040512
  Receipt Date: 20040512
  Transmission Date: 20050107
  Serious: No
  Sender: FDA-Public Use
  Company Number: None

PATIENT
  Age: 54 Year
  Sex: Female
  Weight: 106.1417 kg

DRUGS (1)
  1. ZILACTIN-B MOUTH SORE GEL [Suspect]

REACTIONS (6)
  - CAUSTIC INJURY [None]
  - FEELING HOT [None]
  - GINGIVAL PAIN [None]
  - GINGIVAL SWELLING [None]
  - PHARMACEUTICAL PRODUCT COMPLAINT [None]
  - SWELLING FACE [None]
